FAERS Safety Report 9815461 (Version 1)
Quarter: 2014Q1

REPORT INFORMATION
  Report Type: Spontaneous
  Country: IT (occurrence: IT)
  Receive Date: 20140114
  Receipt Date: 20140114
  Transmission Date: 20141002
  Serious: Yes (Other)
  Sender: FDA-Public Use
  Company Number: IT-ROCHE-1332120

PATIENT
  Age: 91 Year
  Sex: Female

DRUGS (6)
  1. RIVOTRIL [Suspect]
     Indication: PRODUCT USED FOR UNKNOWN INDICATION
     Route: 048
     Dates: start: 20131120, end: 20131201
  2. COTAREG [Suspect]
     Indication: HYPERTENSION
     Route: 048
     Dates: start: 20110101, end: 20131201
  3. NORVASC [Concomitant]
     Route: 065
  4. CITALOPRAM [Concomitant]
  5. EXELON [Concomitant]
  6. ASCRIPTIN (ITALY) [Concomitant]

REACTIONS (3)
  - Renal failure acute [Recovering/Resolving]
  - Dehydration [Recovering/Resolving]
  - Decreased appetite [Recovering/Resolving]
